FAERS Safety Report 23777543 (Version 1)
Quarter: 2024Q2

REPORT INFORMATION
  Report Type: Spontaneous
  Country: ZA (occurrence: None)
  Receive Date: 20240424
  Receipt Date: 20240424
  Transmission Date: 20240716
  Serious: Yes (Other)
  Sender: FDA-Public Use
  Company Number: 2024A093896

PATIENT
  Age: 78 Year
  Sex: Male

DRUGS (9)
  1. BUDESONIDE\FORMOTEROL [Suspect]
     Active Substance: BUDESONIDE\FORMOTEROL
     Indication: Asthma
     Dosage: 120 DOSE 160/4.5 MCG UNKNOWN UNKNOWN
     Route: 055
  2. ATORVASTATIN [Concomitant]
     Active Substance: ATORVASTATIN
     Indication: Blood cholesterol
     Route: 048
  3. UROMAX [Concomitant]
     Indication: Prostate infection
     Route: 048
  4. AZOR [Concomitant]
     Active Substance: AMLODIPINE BESYLATE\OLMESARTAN MEDOXOMIL
     Indication: Anxiety
     Route: 048
  5. TIORES [Concomitant]
     Indication: Chronic obstructive pulmonary disease
     Route: 048
  6. ASTHAVENT ECOHALER [Concomitant]
     Indication: Asthma
     Route: 055
  7. LEVALBUTEROL HYDROCHLORIDE [Concomitant]
     Active Substance: LEVALBUTEROL HYDROCHLORIDE
     Indication: Asthma
     Route: 055
  8. TIOTROPIUM BROMIDE [Concomitant]
     Active Substance: TIOTROPIUM BROMIDE
     Indication: Asthma
     Route: 048
  9. IPRABUT [Concomitant]
     Route: 048

REACTIONS (3)
  - Neoplasm malignant [Unknown]
  - Illness [Unknown]
  - Chronic obstructive pulmonary disease [Unknown]
